FAERS Safety Report 7261470-7 (Version None)
Quarter: 2011Q1

REPORT INFORMATION
  Report Type: 
  Country: None (occurrence: None)
  Receive Date: 20110130
  Receipt Date: 20100921
  Transmission Date: 20110831
  Serious: No
  Sender: FDA-Public Use
  Company Number: US-ABBOTT-10P-163-0672439-00

PATIENT
  Age: 61 Year
  Sex: Male

DRUGS (3)
  1. INTERCORT [Concomitant]
     Indication: CROHN'S DISEASE
     Dosage: DAILY DOSE: 120 MG
  2. HUMIRA [Suspect]
     Indication: CROHN'S DISEASE
     Dosage: LOADING DOSE
     Dates: start: 20100909
  3. IMURAN [Concomitant]
     Indication: CROHN'S DISEASE
     Dosage: DAILY DOSE: 150MG

REACTIONS (1)
  - CONDITION AGGRAVATED [None]
